FAERS Safety Report 23404119 (Version 2)
Quarter: 2024Q1

REPORT INFORMATION
  Report Type: Other
  Country: DE (occurrence: None)
  Receive Date: 20240116
  Receipt Date: 20240314
  Transmission Date: 20240410
  Serious: No
  Sender: FDA-Public Use
  Company Number: DE-ROCHE-3491946

PATIENT
  Age: 36 Year
  Sex: Female

DRUGS (9)
  1. OCRELIZUMAB [Suspect]
     Active Substance: OCRELIZUMAB
     Indication: Relapsing multiple sclerosis
     Route: 042
     Dates: start: 20230830
  2. ETONOGESTREL [Concomitant]
     Active Substance: ETONOGESTREL
     Indication: Prophylaxis
     Dosage: DOSE: 68?DOSE FREQUENCY: OTHER
     Route: 058
     Dates: start: 202201
  3. CHOLECALCIFEROL [Concomitant]
     Active Substance: CHOLECALCIFEROL
     Indication: Vitamin D deficiency
     Dosage: DOSE: 1000?DOSE FREQUENCY: QD (EVERY DAY)
     Route: 048
     Dates: start: 202305
  4. TETANUS TOXOID ADSORBED (VACCINE) [Concomitant]
     Active Substance: CLOSTRIDIUM TETANI TOXOID ANTIGEN (FORMALDEHYDE INACTIVATED)
     Indication: Prophylaxis
     Dosage: DOSE: UN?DOSE FREQUENCY: OTHER
     Route: 030
     Dates: start: 20230721, end: 20230721
  5. PNEUMOCOCCAL VACCINE POLYVALENT NOS [Concomitant]
     Active Substance: PNEUMOCOCCAL VACCINE POLYVALENT
     Indication: Prophylaxis
     Dosage: DOSE: UN?DOSE FREQUENCY: OTHER
     Route: 030
     Dates: start: 20230721, end: 20230721
  6. PREDNISOLONE [Concomitant]
     Active Substance: PREDNISOLONE
     Dosage: DOSE FREQUENCY: ONCE
     Route: 042
     Dates: start: 20230830, end: 20230830
  7. PREDNISOLONE [Concomitant]
     Active Substance: PREDNISOLONE
     Dosage: DOSE FREQUENCY: ONCE
     Route: 042
     Dates: start: 20230914, end: 20230914
  8. EBASTINE [Concomitant]
     Active Substance: EBASTINE
     Dosage: DOSE FREQUENCY: 2 TIMES A DAY FOR 3 DAYS, START 1 DAY BEFORE INFUSION
     Route: 048
     Dates: start: 20230829, end: 20230831
  9. EBASTINE [Concomitant]
     Active Substance: EBASTINE
     Dosage: DOSE FREQUENCY: 2 TIMES A DAY FOR 3 DAYS, START 1 DAY BEFORE INFUSION
     Route: 048
     Dates: start: 20230913, end: 20230915

REACTIONS (2)
  - Infusion related reaction [Recovered/Resolved]
  - COVID-19 [Recovered/Resolved]

NARRATIVE: CASE EVENT DATE: 20230914
